FAERS Safety Report 23795110 (Version 2)
Quarter: 2024Q2

REPORT INFORMATION
  Report Type: Spontaneous
  Country: US (occurrence: US)
  Receive Date: 20240429
  Receipt Date: 20240513
  Transmission Date: 20240716
  Serious: Yes (Life-Threatening, Hospitalization)
  Sender: FDA-Public Use
  Company Number: US-TEVA-VS-3184859

PATIENT
  Age: 37 Year
  Sex: Female

DRUGS (1)
  1. EPINEPHRINE [Suspect]
     Active Substance: EPINEPHRINE
     Indication: Local anaesthesia
     Route: 058

REACTIONS (6)
  - Toxicity to various agents [Recovering/Resolving]
  - Cardiotoxicity [Recovering/Resolving]
  - Ischaemic stroke [Recovering/Resolving]
  - Incorrect dose administered [Unknown]
  - Treatment noncompliance [Unknown]
  - Stress cardiomyopathy [Recovering/Resolving]
